FAERS Safety Report 14872002 (Version 1)
Quarter: 2018Q2

REPORT INFORMATION
  Report Type: Spontaneous
  Country: None (occurrence: DE)
  Receive Date: 20180509
  Receipt Date: 20180509
  Transmission Date: 20180711
  Serious: Yes (Hospitalization)
  Sender: FDA-Public Use
  Company Number: DE-MEDAC PHARMA, INC.-2047505

PATIENT
  Sex: Female

DRUGS (1)
  1. METHOTREXATE SODIUM. [Suspect]
     Active Substance: METHOTREXATE SODIUM
     Indication: POLYARTHRITIS
     Route: 051

REACTIONS (2)
  - Blood test abnormal [Not Recovered/Not Resolved]
  - Polyneuropathy [Not Recovered/Not Resolved]
